FAERS Safety Report 7233265-1 (Version None)
Quarter: 2011Q1

REPORT INFORMATION
  Report Type: 
  Country: None (occurrence: None)
  Receive Date: 20110106
  Receipt Date: 20101124
  Transmission Date: 20110831
  Serious: No
  Sender: FDA-Public Use
  Company Number: 2010-01033

PATIENT
  Age: 81 Year
  Sex: Female
  Weight: 52.1637 kg

DRUGS (7)
  1. AMITRIPTYLINE HCL [Concomitant]
  2. SYNTHROID [Concomitant]
  3. VITAMIN B-12 [Concomitant]
  4. EVISTA [Concomitant]
  5. VITAMIN D [Concomitant]
  6. ZICAM COLD REMEDY RAPIDMELTS WITH VITAMIN C [Suspect]
     Dosage: SPORADIC USE X 3 DAYS
     Dates: start: 20101118, end: 20101120
  7. IRON SUPPLEMENT [Concomitant]

REACTIONS (2)
  - DYSGEUSIA [None]
  - AGEUSIA [None]
